FAERS Safety Report 7833549-X (Version None)
Quarter: 2011Q4

REPORT INFORMATION
  Report Type: 
  Country: None (occurrence: None)
  Receive Date: 20111024
  Receipt Date: 20111018
  Transmission Date: 20120403
  Serious: Yes (Death)
  Sender: FDA-Public Use
  Company Number: FR-SANOFI-AVENTIS-2009SA007514

PATIENT
  Age: 75 Year
  Sex: Male
  Weight: 87 kg

DRUGS (15)
  1. DOCETAXEL [Suspect]
     Route: 042
     Dates: start: 20091204, end: 20091204
  2. DOCETAXEL [Suspect]
     Route: 042
     Dates: start: 20091113, end: 20091113
  3. PREDNISONE [Suspect]
     Route: 048
     Dates: start: 20091113, end: 20091204
  4. DIGOXIN [Concomitant]
     Dates: start: 19890101
  5. FUROSEMIDE [Concomitant]
     Dates: start: 19890101
  6. BLINDED THERAPY [Suspect]
     Route: 042
     Dates: start: 20091204, end: 20091204
  7. BLINDED THERAPY [Suspect]
     Route: 042
     Dates: start: 20091113, end: 20091113
  8. ATORVASTATIN CALCIUM [Concomitant]
  9. ACEBUTOLOL [Concomitant]
     Dates: start: 19890101
  10. ATACAND [Concomitant]
  11. DECAPEPTYL /SWE/ [Concomitant]
     Indication: HORMONE REPLACEMENT THERAPY
     Dates: start: 19990101
  12. LOVENOX [Concomitant]
     Dates: start: 20091124, end: 20091201
  13. ALLOPURINOL [Concomitant]
  14. DAONIL SEMI [Concomitant]
     Dates: start: 20060101
  15. SINTROM [Concomitant]
     Dates: start: 20060101

REACTIONS (1)
  - HAEMORRHAGIC STROKE [None]
